FAERS Safety Report 20664246 (Version 1)
Quarter: 2022Q2

REPORT INFORMATION
  Report Type: Spontaneous
  Country: US (occurrence: US)
  Receive Date: 20220401
  Receipt Date: 20220401
  Transmission Date: 20220721
  Serious: Yes (Other)
  Sender: FDA-Public Use
  Company Number: US-AMGEN-USASP2022053667

PATIENT
  Sex: Female

DRUGS (1)
  1. NPLATE [Suspect]
     Active Substance: ROMIPLOSTIM
     Indication: Immune thrombocytopenia
     Dosage: UNK UNK, QWK
     Route: 065
     Dates: start: 2021, end: 202202

REACTIONS (3)
  - Blast cells present [Recovering/Resolving]
  - Janus kinase 2 mutation [Unknown]
  - Leukocytosis [Recovered/Resolved]
